FAERS Safety Report 6168329-7 (Version None)
Quarter: 2009Q2

REPORT INFORMATION
  Report Type: 
  Country: None (occurrence: None)
  Receive Date: 20090427
  Receipt Date: 20090415
  Transmission Date: 20091009
  Serious: Yes (Life-Threatening, Hospitalization)
  Sender: FDA-Public Use
  Company Number: JP-PFIZER INC-2009190332

PATIENT

DRUGS (7)
  1. SUNITINIB MALATE [Suspect]
     Indication: RENAL CELL CARCINOMA
     Dosage: 50 MG, 1X/DAY
     Route: 048
     Dates: start: 20081105
  2. VALSARTAN [Concomitant]
     Dosage: UNK
     Route: 048
     Dates: start: 20081109, end: 20081203
  3. GARASONE [Concomitant]
     Dosage: UNK
     Route: 062
     Dates: start: 20081117, end: 20081201
  4. SENNOSIDE A [Concomitant]
     Dosage: UNK
     Route: 048
     Dates: start: 20081116, end: 20081116
  5. NORVASC [Concomitant]
     Dosage: UNK
     Route: 048
     Dates: start: 20081126, end: 20081203
  6. NAIXAN [Concomitant]
     Dosage: UNK
     Route: 048
     Dates: start: 20081126, end: 20081203
  7. PARIET [Concomitant]
     Dosage: UNK
     Route: 048
     Dates: start: 20081126, end: 20081203

REACTIONS (4)
  - DISSEMINATED INTRAVASCULAR COAGULATION [None]
  - LARGE INTESTINE PERFORATION [None]
  - PERITONITIS [None]
  - PLATELET COUNT DECREASED [None]
